FAERS Safety Report 6380239-9 (Version None)
Quarter: 2009Q3

REPORT INFORMATION
  Report Type: 
  Country: None (occurrence: None)
  Receive Date: 20090929
  Receipt Date: 20090917
  Transmission Date: 20100115
  Serious: Yes (Hospitalization)
  Sender: FDA-Public Use
  Company Number: JP-WYE-H11061809

PATIENT
  Age: 48 Year
  Sex: Male

DRUGS (7)
  1. ARTANE [Suspect]
     Indication: PARKINSONISM
     Dosage: UNKNOWN
     Route: 048
     Dates: end: 20090821
  2. ARTANE [Suspect]
     Indication: DEPRESSION
  3. TOLEDOMIN [Concomitant]
     Dosage: UNKNOWN
     Route: 048
     Dates: end: 20090821
  4. DIAZEPAM [Concomitant]
     Dosage: UNKNOWN
     Route: 048
     Dates: end: 20090821
  5. HALCION [Concomitant]
     Dosage: UNKNOWN
     Route: 048
     Dates: end: 20090821
  6. IMPROMEN [Concomitant]
     Dosage: UNKNOWN
     Route: 048
     Dates: end: 20090821
  7. RISPERDAL [Suspect]
     Dosage: UNKNOWN
     Dates: end: 20090821

REACTIONS (3)
  - C-REACTIVE PROTEIN DECREASED [None]
  - INTENTIONAL SELF-INJURY [None]
  - NEUROLEPTIC MALIGNANT SYNDROME [None]
